FAERS Safety Report 4320991-7 (Version None)
Quarter: 2004Q1

REPORT INFORMATION
  Report Type: 
  Country: None (occurrence: None)
  Receive Date: 20040315
  Receipt Date: 20030909
  Transmission Date: 20041129
  Serious: Yes (Other)
  Sender: FDA-Public Use
  Company Number: PHEH2003US08295

PATIENT
  Age: 5 Year
  Sex: Female

DRUGS (1)
  1. TRILEPTAL [Suspect]
     Dosage: 600 MG, BID
     Dates: start: 20021230, end: 20030909

REACTIONS (1)
  - NEPHROLITHIASIS [None]
